FAERS Safety Report 7749305-7 (Version None)
Quarter: 2011Q3

REPORT INFORMATION
  Report Type: 
  Country: None (occurrence: None)
  Receive Date: 20110909
  Receipt Date: 20110826
  Transmission Date: 20111222
  Serious: Yes (Death, Hospitalization)
  Sender: FDA-Public Use
  Company Number: 2011CP000143

PATIENT
  Age: 73 Year
  Sex: Male

DRUGS (3)
  1. AMIKACIN SULFATE [Suspect]
  2. ACETAMINOPHEN [Suspect]
     Dosage: IV
     Route: 042
  3. AXEPIM (CEFEPIME HYDROCHLORIDE) [Suspect]
     Indication: SEPSIS
     Dosage: 1 GRAM;2/1DAY;IV
     Route: 042
     Dates: start: 20101217, end: 20110106

REACTIONS (7)
  - BONE MARROW DISORDER [None]
  - EOSINOPHILIA [None]
  - NEOPLASM PROGRESSION [None]
  - PANCYTOPENIA [None]
  - DERMATITIS EXFOLIATIVE [None]
  - RECTAL CANCER [None]
  - BLADDER NEOPLASM [None]
